FAERS Safety Report 15656432 (Version 1)
Quarter: 2018Q4

REPORT INFORMATION
  Report Type: Spontaneous
  Country: US (occurrence: US)
  Receive Date: 20181126
  Receipt Date: 20181126
  Transmission Date: 20190205
  Serious: Yes (Other)
  Sender: FDA-Public Use
  Company Number: US-JNJFOC-20181127708

PATIENT
  Age: 56 Year
  Sex: Female
  Weight: 65.77 kg

DRUGS (2)
  1. INVOKANA [Suspect]
     Active Substance: CANAGLIFLOZIN
     Indication: DIABETES MELLITUS
     Route: 048
     Dates: start: 20140620, end: 20150921
  2. INVOKANA [Suspect]
     Active Substance: CANAGLIFLOZIN
     Indication: DIABETES MELLITUS
     Route: 048
     Dates: end: 20170817

REACTIONS (2)
  - Diabetic ketoacidosis [Not Recovered/Not Resolved]
  - Toe amputation [Unknown]

NARRATIVE: CASE EVENT DATE: 20141013
